FAERS Safety Report 8364867-7 (Version None)
Quarter: 2012Q1

REPORT INFORMATION
  Report Type: 
  Country: None (occurrence: None)
  Receive Date: 20120323
  Receipt Date: 20111111
  Transmission Date: 20120608
  Serious: Yes (Hospitalization)
  Sender: FDA-Public Use
  Company Number: 163-21880-11111764

PATIENT
  Age: 83 Year
  Sex: Male

DRUGS (5)
  1. ALKERAN [Concomitant]
  2. AMBIEN [Concomitant]
  3. REVLIMID [Suspect]
     Indication: MULTIPLE MYELOMA
     Dosage: 10 MG, X21 CAPS, PO
     Route: 048
     Dates: start: 20111020
  4. MULTI-VITAMIN/FLUORIDE (MULTIVITAMINS W/FLUORIDE) [Concomitant]
  5. DEXAMETHASONE [Concomitant]

REACTIONS (1)
  - PNEUMONIA [None]
